FAERS Safety Report 8293028-5 (Version None)
Quarter: 2012Q2

REPORT INFORMATION
  Report Type: 
  Country: None (occurrence: None)
  Receive Date: 20120417
  Receipt Date: 20111206
  Transmission Date: 20120825
  Serious: No
  Sender: FDA-Public Use
  Company Number: US-ASTRAZENECA-2010SE56868

PATIENT
  Age: 59 Year
  Sex: Male

DRUGS (2)
  1. NEXIUM [Suspect]
     Route: 048
  2. NEXIUM [Suspect]
     Indication: BARRETT'S OESOPHAGUS
     Route: 048

REACTIONS (4)
  - GASTRIC DISORDER [None]
  - BARRETT'S OESOPHAGUS [None]
  - INCORRECT DOSE ADMINISTERED [None]
  - OFF LABEL USE [None]
